FAERS Safety Report 13680258 (Version 1)
Quarter: 2017Q2

REPORT INFORMATION
  Report Type: Spontaneous
  Country: CA (occurrence: CA)
  Receive Date: 20170622
  Receipt Date: 20170622
  Transmission Date: 20170830
  Serious: Yes (Other)
  Sender: FDA-Public Use
  Company Number: CA-BIOMARINAP-CA-2017-114408

PATIENT
  Age: 5 Year
  Sex: Female
  Weight: 17.2 kg

DRUGS (10)
  1. EMLA [Concomitant]
     Active Substance: LIDOCAINE\PRILOCAINE
     Indication: PREMEDICATION
     Dosage: UNK, SINGLE
     Route: 061
  2. CALCIUM PHOSPHATE [Concomitant]
     Active Substance: CALCIUM PHOSPHATE
     Indication: SECRETION DISCHARGE
     Dosage: UNK, BID
     Route: 048
     Dates: start: 20170117
  3. NAGLAZYME [Suspect]
     Active Substance: GALSULFASE
     Indication: MUCOPOLYSACCHARIDOSIS VI
     Dosage: 1 MG/KG, QW
     Route: 042
     Dates: start: 20150424
  4. CAPTORIL [Concomitant]
     Active Substance: CAPTOPRIL
     Dosage: 12 MG, TID
     Route: 065
     Dates: start: 201611
  5. KALIUM BICHROMICUM [Concomitant]
     Indication: SECRETION DISCHARGE
     Dosage: UNK, TID
     Route: 048
     Dates: start: 20170117
  6. KALIUM BICHROMICUM [Concomitant]
     Dosage: UNK, QD
     Route: 048
  7. AERIUS                             /01009701/ [Concomitant]
     Active Substance: EBASTINE
     Indication: PREMEDICATION
     Dosage: 1.25 MG, SINGLE
     Route: 048
  8. TYLENOL [Concomitant]
     Active Substance: ACETAMINOPHEN
     Indication: PREMEDICATION
     Dosage: 240 MG, SINGLE
     Route: 048
  9. KALIUM BICHROMICUM [Concomitant]
     Dosage: UNK, BID
     Route: 048
  10. CAPTORIL [Concomitant]
     Active Substance: CAPTOPRIL
     Indication: BLOOD PRESSURE ABNORMAL
     Dosage: 10 MG, UNK
     Route: 065
     Dates: end: 201611

REACTIONS (4)
  - Catheter site pain [Unknown]
  - Cough [Unknown]
  - Vomiting [Unknown]
  - Viral upper respiratory tract infection [Unknown]

NARRATIVE: CASE EVENT DATE: 20170618
